FAERS Safety Report 6726999-6 (Version None)
Quarter: 2010Q2

REPORT INFORMATION
  Report Type: 
  Country: None (occurrence: None)
  Receive Date: 20100517
  Receipt Date: 20100504
  Transmission Date: 20101027
  Serious: Yes (Other)
  Sender: FDA-Public Use
  Company Number: US-RB-009208-10

PATIENT
  Age: 78 Year
  Sex: Male

DRUGS (1)
  1. MUCINEX DM [Suspect]
     Indication: COUGH
     Dosage: TOOK 1 PILL
     Route: 048
     Dates: start: 20100502

REACTIONS (2)
  - BLOOD PRESSURE INCREASED [None]
  - DIARRHOEA [None]
